FAERS Safety Report 9995347 (Version 1)
Quarter: 2014Q1

REPORT INFORMATION
  Report Type: Spontaneous
  Country: AU (occurrence: None)
  Receive Date: 20140307
  Receipt Date: 20140307
  Transmission Date: 20141002
  Serious: Yes (Other)
  Sender: FDA-Public Use
  Company Number: 2014/011

PATIENT
  Age: 46 Year
  Sex: Female

DRUGS (4)
  1. LEVETIRACETAM [Suspect]
     Indication: IDIOPATHIC GENERALISED EPILEPSY
     Dosage: 500 MG BID + UNK
  2. LAMOTRIGINE [Suspect]
     Indication: IDIOPATHIC GENERALISED EPILEPSY
     Dosage: 200 MG I MANE+II NOCTE
  3. GABAPENTIN (NO. PREF NAME) [Concomitant]
  4. VALPROATE (NO PREF. NAME) [Concomitant]

REACTIONS (1)
  - Pathological gambling [None]
